FAERS Safety Report 5152682-7 (Version None)
Quarter: 2006Q4

REPORT INFORMATION
  Report Type: 
  Country: None (occurrence: None)
  Receive Date: 20061116
  Receipt Date: 20061110
  Transmission Date: 20070319
  Serious: Yes (Hospitalization)
  Sender: FDA-Public Use
  Company Number: FR-MERCK-0611FRA00040

PATIENT
  Age: 41 Year
  Sex: Female

DRUGS (5)
  1. INDOCIN [Suspect]
     Indication: ANKYLOSING SPONDYLITIS
     Route: 048
  2. PREDNISONE TAB [Concomitant]
     Indication: ANKYLOSING SPONDYLITIS
     Route: 048
  3. METHOTREXATE [Concomitant]
     Indication: ANKYLOSING SPONDYLITIS
     Route: 048
  4. INFLIXIMAB [Concomitant]
     Indication: ANKYLOSING SPONDYLITIS
     Route: 042
     Dates: start: 20040408, end: 20050831
  5. ACETAMINOPHEN AND TRAMADOL HYDROCHLORIDE [Concomitant]
     Route: 048
     Dates: end: 20051001

REACTIONS (1)
  - LYMPH NODE TUBERCULOSIS [None]
